FAERS Safety Report 18006035 (Version 2)
Quarter: 2020Q3

REPORT INFORMATION
  Report Type: Spontaneous
  Country: US (occurrence: US)
  Receive Date: 20200709
  Receipt Date: 20200828
  Transmission Date: 20201103
  Serious: No
  Sender: FDA-Public Use
  Company Number: NVSC2020US193222

PATIENT
  Age: 19 Year
  Sex: Female

DRUGS (1)
  1. COSENTYX [Suspect]
     Active Substance: SECUKINUMAB
     Indication: PRODUCT USED FOR UNKNOWN INDICATION
     Dosage: UNK (LOADING DOSE PHASE)
     Route: 065

REACTIONS (8)
  - Nasal congestion [Unknown]
  - Cough [Unknown]
  - Pain [Unknown]
  - Nasopharyngitis [Unknown]
  - Acne cystic [Unknown]
  - Fatigue [Unknown]
  - Rhinorrhoea [Unknown]
  - Oropharyngeal pain [Unknown]
